FAERS Safety Report 13342221 (Version 1)
Quarter: 2017Q1

REPORT INFORMATION
  Report Type: Spontaneous
  Country: US (occurrence: US)
  Receive Date: 20170316
  Receipt Date: 20170316
  Transmission Date: 20170428
  Serious: No
  Sender: FDA-Public Use
  Company Number: None

PATIENT
  Age: 75 Year
  Sex: Female
  Weight: 52.21 kg

DRUGS (5)
  1. LEVOTHYROXIN [Concomitant]
     Active Substance: LEVOTHYROXINE
  2. CURACAL + D3 [Concomitant]
  3. PROLIA [Suspect]
     Active Substance: DENOSUMAB
     Indication: OSTEOPOROSIS
     Dosage: 60MG/ML SOL 1 DOSE Q 6 MO. S.Q. LEFT ARM
     Route: 058
     Dates: start: 20160808
  4. SIMVASTATIN. [Concomitant]
     Active Substance: SIMVASTATIN
  5. CALCIUM [Concomitant]
     Active Substance: CALCIUM

REACTIONS (5)
  - Rash [None]
  - Urticaria [None]
  - Arthralgia [None]
  - Pruritus [None]
  - Somnolence [None]

NARRATIVE: CASE EVENT DATE: 20170212
